FAERS Safety Report 4470191-5 (Version None)
Quarter: 2004Q3

REPORT INFORMATION
  Report Type: 
  Country: None (occurrence: None)
  Receive Date: 20040917
  Receipt Date: 20040707
  Transmission Date: 20050211
  Serious: No
  Sender: FDA-Public Use
  Company Number: US-JNJFOC-20040702838

PATIENT
  Age: 40 Year
  Sex: Female
  Weight: 78.9259 kg

DRUGS (6)
  1. ORTHO EVRA [Suspect]
     Indication: CONTRACEPTION
     Dosage: 1 DOSE(S), 3 IN 4 WEEK, TRANSDERMAL
     Route: 062
     Dates: start: 20040627, end: 20040707
  2. LANTIS INSULIN (INSULIN GLARGINE) [Concomitant]
  3. HUMALOG INSULIN (INSULIN LISPRO) [Concomitant]
  4. MVI (MULTIVITAMINS) [Concomitant]
  5. CRESTOR (ALL OTHER THERAPEUTIC PRODUCTS) [Concomitant]
  6. ZESTRIL [Concomitant]

REACTIONS (10)
  - ANOREXIA [None]
  - BLOOD GLUCOSE INCREASED [None]
  - DEPRESSED MOOD [None]
  - DIZZINESS [None]
  - DYSMENORRHOEA [None]
  - HEADACHE [None]
  - MOOD ALTERED [None]
  - NAUSEA [None]
  - VOMITING [None]
  - WEIGHT DECREASED [None]
